FAERS Safety Report 6301695-8 (Version None)
Quarter: 2009Q3

REPORT INFORMATION
  Report Type: 
  Country: None (occurrence: None)
  Receive Date: 20090807
  Receipt Date: 20090730
  Transmission Date: 20100115
  Serious: Yes (Other)
  Sender: FDA-Public Use
  Company Number: PHEH2009US08465

PATIENT
  Sex: Female

DRUGS (7)
  1. ENABLEX [Suspect]
     Dosage: 15 MG, UNK
  2. ACTONEL [Concomitant]
  3. ALLEGRA [Concomitant]
  4. CIMETIDINE [Concomitant]
  5. LOVASTATIN [Concomitant]
  6. MIRAPEX [Concomitant]
  7. DILANTIN                                /AUS/ [Concomitant]

REACTIONS (2)
  - HEART RATE INCREASED [None]
  - TRANSIENT ISCHAEMIC ATTACK [None]
